FAERS Safety Report 4693001-X (Version None)
Quarter: 2005Q2

REPORT INFORMATION
  Report Type: 
  Country: None (occurrence: None)
  Receive Date: 20050615
  Receipt Date: 20050531
  Transmission Date: 20051028
  Serious: Yes (Other)
  Sender: FDA-Public Use
  Company Number: USA050699377

PATIENT
  Age: 1 Day
  Sex: Male
  Weight: 3 kg

DRUGS (3)
  1. PROZAC [Suspect]
     Dates: end: 20050517
  2. KLONOPIN [Concomitant]
  3. PRENATAL VITAMINS [Concomitant]

REACTIONS (7)
  - ANTIDEPRESSANT DRUG LEVEL INCREASED [None]
  - CYANOSIS CENTRAL [None]
  - CYANOSIS NEONATAL [None]
  - DRUG EXPOSURE DURING PREGNANCY [None]
  - FEELING JITTERY [None]
  - NEONATAL DISORDER [None]
  - PREMATURE BABY [None]
